FAERS Safety Report 24457777 (Version 1)
Quarter: 2024Q4

REPORT INFORMATION
  Report Type: Spontaneous
  Country: CN (occurrence: CN)
  Receive Date: 20241018
  Receipt Date: 20241018
  Transmission Date: 20250115
  Serious: No
  Sender: ROCHE
  Company Number: CN-BoehringerIngelheim-2023-BI-261737

PATIENT
  Age: 70 Year
  Sex: Female
  Weight: 42.0 kg

DRUGS (1)
  1. ALTEPLASE [Suspect]
     Active Substance: ALTEPLASE
     Indication: Thrombolysis
     Route: 042
     Dates: start: 20230626, end: 20230626

REACTIONS (1)
  - Gingival bleeding [Recovering/Resolving]

NARRATIVE: CASE EVENT DATE: 20230626
